FAERS Safety Report 8620124-2 (Version None)
Quarter: 2012Q3

REPORT INFORMATION
  Report Type: 
  Country: None (occurrence: None)
  Receive Date: 20120824
  Receipt Date: 20120820
  Transmission Date: 20120928
  Serious: Yes (Hospitalization)
  Sender: FDA-Public Use
  Company Number: US-009507513-1207USA003043

PATIENT

DRUGS (8)
  1. TEMAZEPAM [Concomitant]
     Indication: SLEEP DISORDER
     Dosage: UNK
  2. JANUVIA [Suspect]
     Indication: TYPE 2 DIABETES MELLITUS
     Dosage: UNK
     Route: 048
     Dates: end: 20120622
  3. LIPITOR [Concomitant]
     Dosage: UNK
     Dates: start: 20100101
  4. AMARYL [Suspect]
     Indication: TYPE 2 DIABETES MELLITUS
     Dosage: 2 MG, QD
     Route: 048
     Dates: start: 20120621, end: 20120622
  5. ACTOS [Suspect]
     Indication: TYPE 2 DIABETES MELLITUS
     Dosage: UNK
     Dates: end: 20120622
  6. TRICOR [Concomitant]
     Indication: BLOOD TRIGLYCERIDES INCREASED
     Dosage: 8 MG, QD
     Dates: start: 20010101
  7. DIOVAN [Concomitant]
     Indication: HYPERTENSION
     Dosage: 80 MG, BID
     Dates: start: 20100101
  8. LOPRESSOR [Concomitant]
     Dosage: UNK
     Dates: start: 20010101

REACTIONS (14)
  - MALAISE [None]
  - TREMOR [None]
  - BLOOD GLUCOSE DECREASED [None]
  - HEADACHE [None]
  - HEART RATE INCREASED [None]
  - ADVERSE EVENT [None]
  - BLADDER DISORDER [None]
  - FEELING ABNORMAL [None]
  - BLOOD GLUCOSE ABNORMAL [None]
  - MUSCULAR WEAKNESS [None]
  - NAUSEA [None]
  - DIZZINESS [None]
  - COORDINATION ABNORMAL [None]
  - ABDOMINAL PAIN UPPER [None]
